FAERS Safety Report 7366099-8 (Version None)
Quarter: 2011Q1

REPORT INFORMATION
  Report Type: 
  Country: None (occurrence: None)
  Receive Date: 20110322
  Receipt Date: 20110314
  Transmission Date: 20110831
  Serious: Yes (Other)
  Sender: FDA-Public Use
  Company Number: FR-SANOFI-AVENTIS-2010SA059501

PATIENT
  Age: 78 Year
  Sex: Male
  Weight: 96 kg

DRUGS (10)
  1. ZOLPIDEM WINTHROP [Suspect]
     Route: 048
  2. ZALDIAR [Concomitant]
     Indication: PAIN
  3. ALCOHOL [Concomitant]
     Dates: start: 20101003, end: 20101003
  4. OXYBUTYNIN HYDROCHLORIDE [Concomitant]
     Indication: URINARY TRACT DISORDER
     Dosage: DOSE:2.5 UNIT(S)
     Route: 048
  5. ASPEGIC 325 [Concomitant]
     Indication: PAIN
  6. ZOLPIDEM WINTHROP [Suspect]
     Route: 048
     Dates: start: 20100407, end: 20100407
  7. CORTISONE [Concomitant]
  8. MICARDIS [Concomitant]
     Dates: start: 20060107
  9. ZOLPIDEM WINTHROP [Suspect]
     Indication: INSOMNIA
     Route: 048
     Dates: start: 20090611
  10. ALCOHOL [Concomitant]
     Dates: start: 20101003, end: 20101003

REACTIONS (7)
  - TRANSIENT GLOBAL AMNESIA [None]
  - DISORIENTATION [None]
  - AMNESIA [None]
  - ROAD TRAFFIC ACCIDENT [None]
  - INCORRECT DOSE ADMINISTERED [None]
  - FEELING ABNORMAL [None]
  - VISUAL IMPAIRMENT [None]
